FAERS Safety Report 24746357 (Version 1)
Quarter: 2024Q4

REPORT INFORMATION
  Report Type: Spontaneous
  Country: US (occurrence: US)
  Receive Date: 20241218
  Receipt Date: 20241218
  Transmission Date: 20250115
  Serious: No
  Sender: AUROBINDO
  Company Number: US-AUROBINDO-AUR-APL-2024-053423

PATIENT
  Age: 52 Year
  Sex: Male
  Weight: 74.3 kg

DRUGS (2)
  1. LENALIDOMIDE [Suspect]
     Active Substance: LENALIDOMIDE
     Indication: Plasma cell myeloma
     Dosage: 25 MILLIGRAM 2 WEEKS (14 DAYS ON AND 7 DAYS OFF)
     Route: 048
  2. LENALIDOMIDE [Suspect]
     Active Substance: LENALIDOMIDE
     Dosage: 25 MILLIGRAM (3 WEEKS ON AND 1 WEEK OFF)
     Route: 048

REACTIONS (1)
  - Rash [Recovered/Resolved]
